FAERS Safety Report 17238080 (Version 1)
Quarter: 2020Q1

REPORT INFORMATION
  Report Type: Spontaneous
  Country: US (occurrence: US)
  Receive Date: 20200106
  Receipt Date: 20200106
  Transmission Date: 20200409
  Serious: Yes (Other)
  Sender: FDA-Public Use
  Company Number: US-PACIRA-201900236

PATIENT
  Age: 65 Year
  Sex: Female
  Weight: 54.8 kg

DRUGS (3)
  1. BUPIVACAINE. [Suspect]
     Active Substance: BUPIVACAINE
     Indication: MASTECTOMY
     Dosage: 30 CC
  2. EXPAREL [Suspect]
     Active Substance: BUPIVACAINE
     Indication: MASTECTOMY
     Dosage: 20 CC
  3. TUMESCENT SOLUTION [Concomitant]
     Indication: PRODUCT USED FOR UNKNOWN INDICATION
     Dosage: 30 CC OF 1% LIDOCAINE AND EPINEPHRINE IN 500 CC NORMAL SALINE

REACTIONS (2)
  - Local anaesthetic systemic toxicity [Recovered/Resolved]
  - Hypertension [Recovered/Resolved]
